FAERS Safety Report 8590315-8 (Version None)
Quarter: 2012Q3

REPORT INFORMATION
  Report Type: 
  Country: None (occurrence: None)
  Receive Date: 20120813
  Receipt Date: 20120806
  Transmission Date: 20120928
  Serious: Yes (Other)
  Sender: FDA-Public Use
  Company Number: JP-GLAXOSMITHKLINE-B0821883A

PATIENT
  Age: 93 Year
  Sex: Female
  Weight: 37 kg

DRUGS (1)
  1. VALTREX [Suspect]
     Indication: HERPES ZOSTER
     Dosage: 500MG PER DAY
     Route: 048
     Dates: start: 20110705

REACTIONS (7)
  - ENCEPHALOPATHY [None]
  - DYSKINESIA [None]
  - SOMNOLENCE [None]
  - HYPERVENTILATION [None]
  - SOLILOQUY [None]
  - LOGORRHOEA [None]
  - ABNORMAL BEHAVIOUR [None]
